FAERS Safety Report 4682913-9 (Version None)
Quarter: 2005Q2

REPORT INFORMATION
  Report Type: 
  Country: None (occurrence: None)
  Receive Date: 20050602
  Receipt Date: 20050121
  Transmission Date: 20051028
  Serious: No
  Sender: FDA-Public Use
  Company Number: US_0502112056

PATIENT
  Age: 45 Year
  Sex: Female

DRUGS (3)
  1. CYMBALTA [Suspect]
     Indication: MAJOR DEPRESSION
     Dosage: 60 MG DAY
     Dates: start: 20041010
  2. PRILOSEC (OMEPRAZOLE RATIOPHARM) [Concomitant]
  3. ORTHO TRI-CYCLE [Concomitant]

REACTIONS (2)
  - SINUSITIS [None]
  - SUICIDAL IDEATION [None]
